FAERS Safety Report 15748624 (Version 1)
Quarter: 2018Q4

REPORT INFORMATION
  Report Type: Spontaneous
  Country: IT (occurrence: IT)
  Receive Date: 20181221
  Receipt Date: 20181221
  Transmission Date: 20190205
  Serious: Yes (Hospitalization)
  Sender: FDA-Public Use
  Company Number: IT-TEVA-2018-IT-989366

PATIENT
  Age: 82 Year
  Sex: Male

DRUGS (5)
  1. LASIX [Concomitant]
     Active Substance: FUROSEMIDE
  2. DILATREND [Concomitant]
     Active Substance: CARVEDILOL
  3. BINOCRIT [Concomitant]
     Active Substance: ERYTHROPOIETIN
  4. PANTORC [Concomitant]
     Active Substance: PANTOPRAZOLE SODIUM
  5. CLOPIDOGREL [Suspect]
     Active Substance: CLOPIDOGREL BISULFATE
     Indication: ANTICOAGULANT THERAPY
     Dosage: 75 MILLIGRAM DAILY;
     Route: 048
     Dates: start: 20151101, end: 20181126

REACTIONS (1)
  - Melaena [Unknown]

NARRATIVE: CASE EVENT DATE: 20181127
